FAERS Safety Report 7383489-8 (Version None)
Quarter: 2011Q1

REPORT INFORMATION
  Report Type: 
  Country: None (occurrence: None)
  Receive Date: 20110328
  Receipt Date: 20110328
  Transmission Date: 20110831
  Serious: Yes (Death)
  Sender: FDA-Public Use
  Company Number: None

PATIENT
  Age: 73 Year
  Sex: Male
  Weight: 77.1115 kg

DRUGS (1)
  1. PLAVIX [Suspect]
     Indication: MYOCARDIAL INFARCTION
     Dosage: 75 MG ONCE PER DAY PO
     Route: 048
     Dates: start: 20030521, end: 20040521

REACTIONS (1)
  - MEDICATION ERROR [None]
